FAERS Safety Report 6371044-8 (Version None)
Quarter: 2009Q3

REPORT INFORMATION
  Report Type: 
  Country: None (occurrence: None)
  Receive Date: 20090923
  Receipt Date: 20090730
  Transmission Date: 20100115
  Serious: Yes (Hospitalization)
  Sender: FDA-Public Use
  Company Number: FR-PFIZER INC-2009271088

PATIENT
  Age: 25 Year

DRUGS (2)
  1. ATARAX [Suspect]
     Dosage: 6 DF, UNK
     Route: 048
     Dates: start: 20090719, end: 20090719
  2. LEXOMIL [Suspect]
     Dosage: 20 DF, UNK
     Route: 048
     Dates: start: 20090719, end: 20090719

REACTIONS (5)
  - CONFUSIONAL STATE [None]
  - SOMNOLENCE [None]
  - SPEECH DISORDER [None]
  - SUICIDE ATTEMPT [None]
  - VISION BLURRED [None]
